FAERS Safety Report 25987631 (Version 1)
Quarter: 2025Q4

REPORT INFORMATION
  Report Type: Report from Study
  Country: US (occurrence: US)
  Receive Date: 20251103
  Receipt Date: 20251103
  Transmission Date: 20260118
  Serious: Yes (Hospitalization)
  Sender: ROCHE
  Company Number: US-ROCHE-10000391193

PATIENT
  Age: 65 Year
  Sex: Male

DRUGS (9)
  1. VABYSMO [Suspect]
     Active Substance: FARICIMAB-SVOA
     Indication: Diabetic retinopathy
     Route: 050
  2. VABYSMO [Suspect]
     Active Substance: FARICIMAB-SVOA
     Indication: Macular oedema
  3. VABYSMO [Suspect]
     Active Substance: FARICIMAB-SVOA
  4. VABYSMO [Suspect]
     Active Substance: FARICIMAB-SVOA
  5. DAPTOMYCIN [Concomitant]
     Active Substance: DAPTOMYCIN
  6. DICLOFENAC [Concomitant]
     Active Substance: DICLOFENAC
  7. LANTUS [Concomitant]
     Active Substance: INSULIN GLARGINE
  8. TOPROL XL [Concomitant]
     Active Substance: METOPROLOL SUCCINATE
  9. ZOCOR [Concomitant]
     Active Substance: SIMVASTATIN

REACTIONS (5)
  - Localised infection [Unknown]
  - Pneumonia [Unknown]
  - Renal disorder [Unknown]
  - Bone disorder [Unknown]
  - Sepsis [Unknown]
